FAERS Safety Report 13692051 (Version 1)
Quarter: 2017Q2

REPORT INFORMATION
  Report Type: Spontaneous
  Country: KR (occurrence: KR)
  Receive Date: 20170627
  Receipt Date: 20170627
  Transmission Date: 20170830
  Serious: Yes (Hospitalization, Other)
  Sender: FDA-Public Use
  Company Number: KR-BAXTER-2017BAX025761

PATIENT
  Age: 32 Year
  Sex: Male

DRUGS (1)
  1. BICART 650 [Suspect]
     Active Substance: SODIUM BICARBONATE
     Indication: END STAGE RENAL DISEASE
     Route: 010
     Dates: start: 20170619, end: 20170619

REACTIONS (5)
  - Haematuria [Recovered/Resolved]
  - Headache [Recovering/Resolving]
  - Palpitations [Recovering/Resolving]
  - Haemolysis [Recovered/Resolved]
  - Haemorrhage [Unknown]

NARRATIVE: CASE EVENT DATE: 20170619
